FAERS Safety Report 21390042 (Version 1)
Quarter: 2022Q3

REPORT INFORMATION
  Report Type: Spontaneous
  Country: US (occurrence: US)
  Receive Date: 20220929
  Receipt Date: 20220929
  Transmission Date: 20221027
  Serious: No
  Sender: FDA-Public Use
  Company Number: US-MIMS-CORIMC-1078

PATIENT
  Age: 11 Year
  Sex: Male
  Weight: 44.8 kg

DRUGS (1)
  1. AZSTARYS [Suspect]
     Active Substance: DEXMETHYLPHENIDATE HYDROCHLORIDE\SERDEXMETHYLPHENIDATE CHLORIDE
     Indication: Product used for unknown indication
     Dosage: 39.2/7.8 MG
     Route: 065
     Dates: start: 20211130, end: 2022

REACTIONS (2)
  - Periorbital swelling [Recovered/Resolved]
  - Rash [Recovered/Resolved]

NARRATIVE: CASE EVENT DATE: 20220101
